FAERS Safety Report 19501796 (Version 4)
Quarter: 2022Q1

REPORT INFORMATION
  Report Type: Report from Study
  Country: US (occurrence: US)
  Receive Date: 20210707
  Receipt Date: 20220228
  Transmission Date: 20220424
  Serious: Yes (Hospitalization, Other)
  Sender: FDA-Public Use
  Company Number: US-GLAXOSMITHKLINE-US2021097645

PATIENT
  Sex: Female

DRUGS (13)
  1. NIRAPARIB [Suspect]
     Active Substance: NIRAPARIB
     Indication: Ovarian cancer
     Dosage: 200 MG, QD
     Route: 048
     Dates: start: 202008
  2. NIRAPARIB [Suspect]
     Active Substance: NIRAPARIB
     Dosage: 100 MG, QD
     Route: 048
  3. NIRAPARIB [Suspect]
     Active Substance: NIRAPARIB
     Dosage: 100 MG, QD
     Route: 048
     Dates: start: 20210522
  4. NIRAPARIB [Suspect]
     Active Substance: NIRAPARIB
     Dosage: 100 MG, QD
     Route: 048
  5. NIRAPARIB [Suspect]
     Active Substance: NIRAPARIB
     Dosage: 100 MG, QD, WITH FOOD
     Route: 048
  6. NIRAPARIB [Suspect]
     Active Substance: NIRAPARIB
     Dosage: 100 MG, QD
  7. ATORVASTATIN [Concomitant]
     Active Substance: ATORVASTATIN
     Indication: Product used for unknown indication
     Dosage: UNK
  8. DULOXETINE [Concomitant]
     Active Substance: DULOXETINE
     Indication: Product used for unknown indication
     Dosage: UNK
  9. GLIPIZIDE [Concomitant]
     Active Substance: GLIPIZIDE
     Indication: Product used for unknown indication
     Dosage: UNK
  10. METOPROLOL [Concomitant]
     Active Substance: METOPROLOL
     Indication: Product used for unknown indication
     Dosage: UNK
  11. PANTOPRAZOLE [Concomitant]
     Active Substance: PANTOPRAZOLE
     Indication: Product used for unknown indication
     Dosage: UNK
  12. PROCHLORPERAZINE [Concomitant]
     Active Substance: PROCHLORPERAZINE
     Indication: Product used for unknown indication
     Dosage: UNK
  13. XYZAL [Concomitant]
     Active Substance: LEVOCETIRIZINE DIHYDROCHLORIDE
     Indication: Product used for unknown indication
     Dosage: UNK

REACTIONS (12)
  - Surgery [Recovered/Resolved]
  - Hip fracture [Not Recovered/Not Resolved]
  - Blister [Not Recovered/Not Resolved]
  - Pollakiuria [Recovering/Resolving]
  - Contusion [Not Recovered/Not Resolved]
  - Fall [Unknown]
  - Constipation [Not Recovered/Not Resolved]
  - Platelet count decreased [Unknown]
  - Blood magnesium decreased [Not Recovered/Not Resolved]
  - Blood pressure increased [Not Recovered/Not Resolved]
  - Haemoglobin decreased [Unknown]
  - Off label use [Unknown]
